FAERS Safety Report 6017843-3 (Version None)
Quarter: 2008Q4

REPORT INFORMATION
  Report Type: 
  Country: None (occurrence: None)
  Receive Date: 20081223
  Receipt Date: 20081215
  Transmission Date: 20090506
  Serious: Yes (Death)
  Sender: FDA-Public Use
  Company Number: US-PFIZER INC-2008153746

PATIENT
  Age: 34 Year
  Sex: Male

DRUGS (11)
  1. PHENYTOIN AND PHENYTOIN SODIUM [Suspect]
  2. ATENOLOL [Suspect]
  3. HALOPERIDOL [Suspect]
  4. GEMFIBROZIL [Suspect]
  5. TRAZODONE HCL [Suspect]
  6. MIRTAZAPINE [Suspect]
  7. COLCHICINE [Suspect]
  8. FENOFIBRATE [Suspect]
  9. OXYCODONE [Suspect]
  10. LOSARTAN [Suspect]
  11. INDOMETHACIN [Suspect]

REACTIONS (1)
  - COMPLETED SUICIDE [None]
